FAERS Safety Report 19428313 (Version 1)
Quarter: 2021Q2

REPORT INFORMATION
  Report Type: Spontaneous
  Country: US (occurrence: US)
  Receive Date: 20210617
  Receipt Date: 20210617
  Transmission Date: 20210717
  Serious: Yes (Other)
  Sender: FDA-Public Use
  Company Number: None

PATIENT
  Age: 42 Year
  Sex: Female
  Weight: 62.1 kg

DRUGS (6)
  1. VITAMIN D [Concomitant]
     Active Substance: VITAMIN D NOS
  2. MELATONIN [Concomitant]
     Active Substance: MELATONIN
  3. SUTAB [Suspect]
     Active Substance: MAGNESIUM SULFATE\POTASSIUM CHLORIDE\SODIUM SULFATE
     Indication: COLONOSCOPY
     Dosage: ?    OTHER FREQUENCY:12 TABLETS TWICE;?
     Route: 048
     Dates: start: 20210616
  4. ALBUTEROL ASTHMA INHALER [Concomitant]
  5. BENADRYL [Concomitant]
     Active Substance: DIPHENHYDRAMINE HYDROCHLORIDE
  6. ADVAIR ASTHMA INHALER [Concomitant]

REACTIONS (13)
  - Malaise [None]
  - Dehydration [None]
  - Drug ineffective [None]
  - Haemorrhoids [None]
  - Abdominal pain [None]
  - Diarrhoea [None]
  - Vomiting projectile [None]
  - Abdominal distension [None]
  - Incontinence [None]
  - Feeling abnormal [None]
  - Headache [None]
  - Nausea [None]
  - Myalgia [None]

NARRATIVE: CASE EVENT DATE: 20210616
